FAERS Safety Report 19984181 (Version 1)
Quarter: 2021Q4

REPORT INFORMATION
  Report Type: Report from Study
  Country: US (occurrence: US)
  Receive Date: 20211021
  Receipt Date: 20211021
  Transmission Date: 20220303
  Serious: Yes (Other)
  Sender: FDA-Public Use
  Company Number: US-JNJFOC-20211028734

PATIENT
  Sex: Male

DRUGS (1)
  1. SIMPONI [Suspect]
     Active Substance: GOLIMUMAB
     Indication: Colitis ulcerative
     Route: 058
     Dates: start: 20210904

REACTIONS (5)
  - Colitis ulcerative [Unknown]
  - Influenza [Unknown]
  - Product dose omission issue [Unknown]
  - Off label use [Unknown]
  - Product use issue [Unknown]
